FAERS Safety Report 9222019 (Version 1)
Quarter: 2013Q2

REPORT INFORMATION
  Report Type: Spontaneous
  Country: US (occurrence: None)
  Receive Date: 20130410
  Receipt Date: 20130410
  Transmission Date: 20140414
  Serious: Yes (Hospitalization)
  Sender: FDA-Public Use
  Company Number: None

PATIENT
  Age: 69 Year
  Sex: Male
  Weight: 100 kg

DRUGS (3)
  1. WARFARIN [Suspect]
     Indication: DEEP VEIN THROMBOSIS
     Dosage: MG  EVERY DAY  PO
     Route: 048
  2. WARFARIN [Suspect]
     Indication: COAGULOPATHY
     Dosage: MG  EVERY DAY  PO
     Route: 048
  3. ENOXAPARIN (GENERIC) [Suspect]
     Dosage: ML   EVERY DAY  SQ
     Route: 058

REACTIONS (2)
  - Rectal haemorrhage [None]
  - Gastric haemorrhage [None]
